FAERS Safety Report 21549398 (Version 1)
Quarter: 2022Q4

REPORT INFORMATION
  Report Type: Spontaneous
  Country: US (occurrence: None)
  Receive Date: 20221102
  Receipt Date: 20221102
  Transmission Date: 20230113
  Serious: Yes (Disabling)
  Sender: FDA-Public Use
  Company Number: None

PATIENT
  Age: 74 Year
  Sex: Male
  Weight: 96.75 kg

DRUGS (7)
  1. LEVOFLOXACIN [Suspect]
     Active Substance: LEVOFLOXACIN
     Indication: Biopsy prostate
     Dosage: OTHER QUANTITY : 1 TABLET(S);?FREQUENCY : DAILY;?
     Route: 048
     Dates: start: 20221019, end: 20221022
  2. LEVOFLOXACIN [Suspect]
     Active Substance: LEVOFLOXACIN
     Indication: Preoperative care
  3. LIVALO [Concomitant]
     Active Substance: PITAVASTATIN CALCIUM
  4. LOSARTAN [Concomitant]
     Active Substance: LOSARTAN
  5. AMLODIPINE [Concomitant]
     Active Substance: AMLODIPINE BESYLATE
  6. Resmed CPAP 11 [Concomitant]
  7. COENZYME Q10 [Concomitant]
     Active Substance: DIETARY SUPPLEMENT\UBIDECARENONE

REACTIONS (2)
  - Tendonitis [None]
  - Gait disturbance [None]

NARRATIVE: CASE EVENT DATE: 20221023
